FAERS Safety Report 15739159 (Version 8)
Quarter: 2020Q4

REPORT INFORMATION
  Report Type: Spontaneous
  Country: NO (occurrence: NO)
  Receive Date: 20181219
  Receipt Date: 20201009
  Transmission Date: 20210113
  Serious: Yes (Death, Other)
  Sender: FDA-Public Use
  Company Number: PHHY2018NO184356

PATIENT
  Age: 80 Year
  Sex: Male

DRUGS (9)
  1. IMATINIB. [Suspect]
     Active Substance: IMATINIB MESYLATE
     Indication: ACUTE MYELOID LEUKAEMIA
     Dosage: 400 MG, QD
     Route: 065
  2. DASATINIB. [Suspect]
     Active Substance: DASATINIB
     Indication: ACUTE MYELOID LEUKAEMIA
     Dosage: 100 MG, QD (TREATMENT WAS CONTINUED FOR APPROXIMATELY 4 MONTHS)
     Route: 065
  3. HYDROXYUREA. [Suspect]
     Active Substance: HYDROXYUREA
     Indication: MYELOPROLIFERATIVE NEOPLASM
     Dosage: 500 MG
     Route: 065
  4. METFORMIN [Concomitant]
     Active Substance: METFORMIN HYDROCHLORIDE
     Indication: TYPE 2 DIABETES MELLITUS
     Dosage: UNK
     Route: 065
  5. ANAGRELIDE. [Suspect]
     Active Substance: ANAGRELIDE HYDROCHLORIDE
     Indication: PRIMARY MYELOFIBROSIS
     Dosage: 1 MG, QD
     Route: 065
  6. HYDROXYUREA. [Suspect]
     Active Substance: HYDROXYUREA
     Indication: PRIMARY MYELOFIBROSIS
     Dosage: 2500 MG, QD (AGAIN RESTARTED ALONG WITH DASATINIB )
     Route: 065
  7. VALPROIC ACID. [Suspect]
     Active Substance: VALPROIC ACID
     Indication: ACUTE MYELOID LEUKAEMIA
     Dosage: 1 DF (300 MG PLUS 600 MG/DAY FOR THE FIRST 20 DAYS)
     Route: 065
  8. WARFARIN [Concomitant]
     Active Substance: WARFARIN
     Indication: CEREBROVASCULAR DISORDER
     Dosage: UNK
     Route: 065
  9. PREDNISOLONE. [Concomitant]
     Active Substance: PREDNISOLONE
     Indication: PRODUCT USED FOR UNKNOWN INDICATION
     Dosage: UNK
     Route: 065

REACTIONS (12)
  - Adenocarcinoma pancreas [Fatal]
  - Diarrhoea [Fatal]
  - Abdominal pain [Fatal]
  - Pericardial effusion [Fatal]
  - Second primary malignancy [Fatal]
  - Headache [Fatal]
  - Palpitations [Fatal]
  - Neutropenia [Fatal]
  - Back pain [Fatal]
  - Death [Fatal]
  - Intentional product use issue [Unknown]
  - Off label use [Recovered/Resolved]
